FAERS Safety Report 9356858 (Version 24)
Quarter: 2016Q4

REPORT INFORMATION
  Report Type: Report from Study
  Country: CA (occurrence: CA)
  Receive Date: 20130620
  Receipt Date: 20161102
  Transmission Date: 20170207
  Serious: Yes (Other)
  Sender: FDA-Public Use
  Company Number: CA-ROCHE-1237230

PATIENT
  Age: 62 Year
  Sex: Female
  Weight: 62 kg

DRUGS (22)
  1. ACTEMRA [Suspect]
     Active Substance: TOCILIZUMAB
     Route: 042
     Dates: start: 20141007
  2. HYDROMORPH CONTIN [Concomitant]
     Active Substance: HYDROMORPHONE
     Route: 065
  3. HYDROMORPH CONTIN [Concomitant]
     Active Substance: HYDROMORPHONE
     Route: 065
  4. RABEPRAZOLE [Concomitant]
     Active Substance: RABEPRAZOLE
  5. ESTROGEL [Concomitant]
     Active Substance: ESTRADIOL
  6. ACTEMRA [Suspect]
     Active Substance: TOCILIZUMAB
     Route: 042
     Dates: start: 20160322
  7. ACTEMRA [Suspect]
     Active Substance: TOCILIZUMAB
     Indication: RHEUMATOID ARTHRITIS
     Route: 042
     Dates: start: 20130626
  8. ACTEMRA [Suspect]
     Active Substance: TOCILIZUMAB
     Route: 042
     Dates: start: 20160223
  9. ACETAMINOPHEN. [Concomitant]
     Active Substance: ACETAMINOPHEN
     Indication: PREMEDICATION
     Route: 048
     Dates: start: 20080114, end: 20130205
  10. RITUXAN [Suspect]
     Active Substance: RITUXIMAB
     Indication: RHEUMATOID ARTHRITIS
     Route: 042
     Dates: start: 20080114, end: 20130205
  11. DIPHENHYDRAMINE HCL [Concomitant]
     Active Substance: DIPHENHYDRAMINE HYDROCHLORIDE
     Indication: PREMEDICATION
     Route: 048
     Dates: start: 20080114, end: 20130205
  12. VITAMIN E [Concomitant]
     Active Substance: .ALPHA.-TOCOPHEROL
  13. PREDNISONE. [Suspect]
     Active Substance: PREDNISONE
     Indication: RHEUMATOID ARTHRITIS
     Dosage: DECREASED DOSE FROM 5MG/DAY TO 4MG/DAY X1MO.
     Route: 065
  14. PREDNISONE. [Suspect]
     Active Substance: PREDNISONE
     Dosage: DECREASED DOSE FROM 5MG/DAY TO 4MG/DAY X1MO.
     Route: 065
  15. PROSCAR [Concomitant]
     Active Substance: FINASTERIDE
  16. NAPROXEN. [Concomitant]
     Active Substance: NAPROXEN
     Route: 065
  17. MELOXICAM. [Suspect]
     Active Substance: MELOXICAM
     Indication: RHEUMATOID ARTHRITIS
     Route: 048
     Dates: start: 20130801, end: 20130802
  18. VITAMIN B12 [Concomitant]
     Active Substance: CYANOCOBALAMIN
  19. METHYLPREDNISOLONE. [Concomitant]
     Active Substance: METHYLPREDNISOLONE
     Indication: PREMEDICATION
     Route: 042
     Dates: start: 20080114, end: 20130205
  20. ACTEMRA [Suspect]
     Active Substance: TOCILIZUMAB
     Route: 042
     Dates: start: 20130723
  21. ACTEMRA [Suspect]
     Active Substance: TOCILIZUMAB
     Route: 042
     Dates: start: 20150224
  22. VITAMIN C [Concomitant]
     Active Substance: ASCORBIC ACID

REACTIONS (22)
  - Skin atrophy [Not Recovered/Not Resolved]
  - Rheumatoid arthritis [Not Recovered/Not Resolved]
  - Pain [Not Recovered/Not Resolved]
  - Neck pain [Not Recovered/Not Resolved]
  - Abdominal discomfort [Recovered/Resolved]
  - Contusion [Not Recovered/Not Resolved]
  - Pain in extremity [Not Recovered/Not Resolved]
  - Knee arthroplasty [Unknown]
  - Arthralgia [Unknown]
  - Body temperature decreased [Unknown]
  - Intervertebral disc protrusion [Not Recovered/Not Resolved]
  - Rheumatoid arthritis [Not Recovered/Not Resolved]
  - Fatigue [Unknown]
  - Drug ineffective [Unknown]
  - Peripheral swelling [Unknown]
  - Infusion related reaction [Unknown]
  - Blood pressure increased [Unknown]
  - Foot deformity [Recovering/Resolving]
  - Impaired healing [Recovered/Resolved]
  - Muscular weakness [Unknown]
  - Asthenia [Unknown]
  - Laceration [Recovered/Resolved]

NARRATIVE: CASE EVENT DATE: 201004
